FAERS Safety Report 5744300-1 (Version None)
Quarter: 2008Q2

REPORT INFORMATION
  Report Type: 
  Country: None (occurrence: None)
  Receive Date: 20080516
  Receipt Date: 20080512
  Transmission Date: 20081010
  Serious: Yes (Death, Other)
  Sender: FDA-Public Use
  Company Number: CLOF-1000146

PATIENT
  Age: 54 Year
  Sex: Male
  Weight: 74.3 kg

DRUGS (11)
  1. CLOFARABINE            (CLOFARABINE) SOLUTION FOR INFUSION [Suspect]
     Indication: ACUTE MYELOID LEUKAEMIA
     Dosage: 40 MG/M2, QDX5, INTRAVENOUS
     Route: 042
     Dates: start: 20080327, end: 20080331
  2. CYTARABINE [Suspect]
     Indication: ACUTE MYELOID LEUKAEMIA
     Dosage: 1 G/M2, QDX5, INTRAVENOUS
     Route: 042
     Dates: start: 20080327, end: 20080331
  3. THYMOGLOBULIN [Suspect]
     Indication: ACUTE MYELOID LEUKAEMIA
     Dosage: 1 MG/M2, ONCE, INTRAVENOUS
     Route: 042
     Dates: start: 20080329, end: 20080329
  4. VALTREX [Concomitant]
  5. ANIDULAFUNGIN [Concomitant]
  6. CEFEPIME [Concomitant]
  7. DEXAMETHASONE [Concomitant]
  8. NEXIUM (ESOMEPRAZOLE SODIUM) [Concomitant]
  9. FAMOTIDINE [Concomitant]
  10. SINGULAIR [Concomitant]
  11. PRED FORTE [Concomitant]

REACTIONS (16)
  - ALANINE AMINOTRANSFERASE INCREASED [None]
  - ASPARTATE AMINOTRANSFERASE INCREASED [None]
  - BLOOD CREATINE INCREASED [None]
  - BLOOD UREA ABNORMAL [None]
  - DYSPNOEA [None]
  - HAEMATOCRIT ABNORMAL [None]
  - HAEMOGLOBIN ABNORMAL [None]
  - HYPERBILIRUBINAEMIA [None]
  - MULTI-ORGAN FAILURE [None]
  - PALMAR-PLANTAR ERYTHRODYSAESTHESIA SYNDROME [None]
  - PLATELET COUNT ABNORMAL [None]
  - RED BLOOD CELL COUNT ABNORMAL [None]
  - RENAL FAILURE ACUTE [None]
  - STAPHYLOCOCCAL INFECTION [None]
  - TOXIC EPIDERMAL NECROLYSIS [None]
  - WHITE BLOOD CELL COUNT DECREASED [None]
